FAERS Safety Report 5363700-5 (Version None)
Quarter: 2007Q2

REPORT INFORMATION
  Report Type: 
  Country: None (occurrence: None)
  Receive Date: 20070620
  Receipt Date: 20070611
  Transmission Date: 20071010
  Serious: Yes (Other)
  Sender: FDA-Public Use
  Company Number: US-ROCHE-496617

PATIENT
  Age: 59 Year
  Sex: Female
  Weight: 102.1 kg

DRUGS (1)
  1. BONIVA [Suspect]
     Indication: DRUG USE FOR UNKNOWN INDICATION
     Dosage: DOSAGE FORM IS ^PILL^
     Route: 065

REACTIONS (10)
  - ARTHRALGIA [None]
  - BACK PAIN [None]
  - BLADDER SPASM [None]
  - DIARRHOEA [None]
  - DYSPEPSIA [None]
  - FEELING ABNORMAL [None]
  - MYALGIA [None]
  - NAUSEA [None]
  - PYREXIA [None]
  - STUPOR [None]
